FAERS Safety Report 18523109 (Version 1)
Quarter: 2020Q4

REPORT INFORMATION
  Report Type: Spontaneous
  Country: CH (occurrence: CH)
  Receive Date: 20201119
  Receipt Date: 20201119
  Transmission Date: 20210114
  Serious: Yes (Hospitalization, Other)
  Sender: FDA-Public Use
  Company Number: CH-BRISTOL-MYERS SQUIBB COMPANY-BMS-2020-096892

PATIENT
  Age: 54 Year
  Sex: Male

DRUGS (7)
  1. NIVOLUMAB [Suspect]
     Active Substance: NIVOLUMAB
     Dosage: 120 MILLIGRAM
     Route: 065
     Dates: start: 20190817
  2. DEXAMETHASONE. [Concomitant]
     Active Substance: DEXAMETHASONE
     Indication: METASTASES TO CENTRAL NERVOUS SYSTEM
     Dosage: 4 MILLIGRAM, BID
     Route: 048
  3. DEXAMETHASONE. [Concomitant]
     Active Substance: DEXAMETHASONE
     Dosage: 8 MILLIGRAM
     Route: 048
  4. IPILIMUMAB [Suspect]
     Active Substance: IPILIMUMAB
     Indication: METASTATIC MALIGNANT MELANOMA
     Dosage: 350 MILLIGRAM
     Route: 065
     Dates: start: 20180725
  5. NIVOLUMAB [Suspect]
     Active Substance: NIVOLUMAB
     Indication: METASTATIC MALIGNANT MELANOMA
     Dosage: 120 MILLIGRAM
     Route: 065
     Dates: start: 20180625
  6. IPILIMUMAB [Suspect]
     Active Substance: IPILIMUMAB
     Dosage: 350 MILLIGRAM
     Route: 065
     Dates: start: 20180817
  7. NIVOLUMAB [Suspect]
     Active Substance: NIVOLUMAB
     Dosage: 240 MILLIGRAM (FIFTH DOSE)
     Route: 065

REACTIONS (4)
  - Pancreatitis acute [Unknown]
  - Off label use [Unknown]
  - Immune-mediated enterocolitis [Recovered/Resolved]
  - Dry mouth [Unknown]

NARRATIVE: CASE EVENT DATE: 20180810
